FAERS Safety Report 16929914 (Version 3)
Quarter: 2019Q4

REPORT INFORMATION
  Report Type: Spontaneous
  Country: US (occurrence: US)
  Receive Date: 20191017
  Receipt Date: 20191206
  Transmission Date: 20200122
  Serious: Yes (Life-Threatening, Other)
  Sender: FDA-Public Use
  Company Number: US-PFIZER INC-2019446273

PATIENT
  Sex: Female

DRUGS (1)
  1. ALDACTONE [Suspect]
     Active Substance: SPIRONOLACTONE
     Indication: DIURETIC THERAPY
     Dosage: 50 MG, 2X/DAY
     Route: 048

REACTIONS (1)
  - Cardiac arrest [Unknown]
